FAERS Safety Report 4680325-5 (Version None)
Quarter: 2005Q2

REPORT INFORMATION
  Report Type: 
  Country: None (occurrence: None)
  Receive Date: 20050601
  Receipt Date: 20050523
  Transmission Date: 20051028
  Serious: Yes (Other)
  Sender: FDA-Public Use
  Company Number: GB-2005-008630

PATIENT
  Age: 45 Year
  Sex: Female
  Weight: 65.0005 kg

DRUGS (2)
  1. MIRENA [Suspect]
     Indication: MENORRHAGIA
     Dosage: INTRA-UTERINE
     Route: 015
     Dates: start: 20021002, end: 20040101
  2. MESALAMINE [Concomitant]

REACTIONS (3)
  - CHLOASMA [None]
  - DEPRESSED MOOD [None]
  - MENTAL DISORDER [None]
